FAERS Safety Report 7304616-4 (Version None)
Quarter: 2011Q1

REPORT INFORMATION
  Report Type: 
  Country: None (occurrence: None)
  Receive Date: 20110222
  Receipt Date: 20110207
  Transmission Date: 20110831
  Serious: No
  Sender: FDA-Public Use
  Company Number: US-BIOGENIDEC-2010BI042563

PATIENT
  Sex: Female
  Weight: 78 kg

DRUGS (1)
  1. TYSABRI [Suspect]
     Indication: MULTIPLE SCLEROSIS
     Route: 042
     Dates: start: 20100412, end: 20101115

REACTIONS (4)
  - SINUSITIS [None]
  - NEUTRALISING ANTIBODIES POSITIVE [None]
  - MULTIPLE SCLEROSIS [None]
  - DRUG INEFFECTIVE [None]
